FAERS Safety Report 21880865 (Version 2)
Quarter: 2023Q1

REPORT INFORMATION
  Report Type: Spontaneous
  Country: JO (occurrence: None)
  Receive Date: 20230118
  Receipt Date: 20230201
  Transmission Date: 20230417
  Serious: Yes (Other)
  Sender: FDA-Public Use
  Company Number: JO-Eisai Inc (Eisai China)-EC-2023-132049

PATIENT
  Age: 22 Year
  Sex: Female

DRUGS (8)
  1. FYCOMPA [Suspect]
     Active Substance: PERAMPANEL
     Indication: Product used for unknown indication
     Dosage: FREQUENCY UNKNOWN
     Route: 048
     Dates: start: 2022, end: 2022
  2. FYCOMPA [Suspect]
     Active Substance: PERAMPANEL
     Dosage: FREQUENCY UNKNOWN
     Route: 048
     Dates: start: 2022, end: 2022
  3. FYCOMPA [Suspect]
     Active Substance: PERAMPANEL
     Dosage: FREQUENCY UNKNOWN
     Route: 048
     Dates: start: 2022, end: 2022
  4. FYCOMPA [Suspect]
     Active Substance: PERAMPANEL
     Dosage: FREQUENCY UNKNOWN
     Route: 048
     Dates: start: 2022
  5. KEPPRA [Concomitant]
     Active Substance: LEVETIRACETAM
     Indication: Product used for unknown indication
     Dosage: DOSE AND FREQUENCY UNKNOWN
     Route: 065
  6. CARBATROL [Concomitant]
     Active Substance: CARBAMAZEPINE
     Indication: Product used for unknown indication
     Dosage: DOSE AND FREQUENCY UNKNOWN
     Route: 065
  7. PHENOBARBITAL [Concomitant]
     Active Substance: PHENOBARBITAL
     Indication: Product used for unknown indication
     Dosage: DOSE UNKNOWN
     Route: 065
  8. PHENYTOIN [Concomitant]
     Active Substance: PHENYTOIN
     Indication: Product used for unknown indication
     Dosage: DOSE AND FREQUENCY UNKNOWN
     Route: 065

REACTIONS (1)
  - Seizure [Recovering/Resolving]

NARRATIVE: CASE EVENT DATE: 20220101
